FAERS Safety Report 7824676-1 (Version None)
Quarter: 2011Q4

REPORT INFORMATION
  Report Type: 
  Country: None (occurrence: None)
  Receive Date: 20111019
  Receipt Date: 20111010
  Transmission Date: 20120403
  Serious: Yes (Other)
  Sender: FDA-Public Use
  Company Number: PHEH2011US06594

PATIENT
  Sex: Female

DRUGS (2)
  1. UNNAMED MEDICATIONS [Suspect]
     Dosage: UNK
  2. DIOVAN HCT [Suspect]
     Dosage: 1 DF, QD (160/25 MG)

REACTIONS (1)
  - CEREBROVASCULAR ACCIDENT [None]
